FAERS Safety Report 14006246 (Version 1)
Quarter: 2017Q3

REPORT INFORMATION
  Report Type: Spontaneous
  Country: IT (occurrence: IT)
  Receive Date: 20170924
  Receipt Date: 20170924
  Transmission Date: 20171128
  Serious: Yes (Hospitalization)
  Sender: FDA-Public Use
  Company Number: IT-ASTRAZENECA-2017SE96236

PATIENT
  Age: 28896 Day
  Sex: Male

DRUGS (8)
  1. CARDIOASPIRIN [Suspect]
     Active Substance: ASPIRIN
     Dosage: DAILY
     Route: 048
     Dates: start: 20160101, end: 20160525
  2. BRILIQUE [Suspect]
     Active Substance: TICAGRELOR
     Dosage: DAILY
     Route: 048
     Dates: start: 20160101, end: 20160525
  3. PRAMIPEXOLE. [Concomitant]
     Active Substance: PRAMIPEXOLE
  4. INDERAL [Concomitant]
     Active Substance: PROPRANOLOL HYDROCHLORIDE
     Dosage: (STRENGHT: 100 MG + 25 MG, TABLET), 200 MG,
  5. SINEMET [Concomitant]
     Active Substance: CARBIDOPA\LEVODOPA
     Dosage: (STRENGHT: 100 MG + 25 MG, TABLET), 200 MG,
     Route: 048
  6. AVODART [Concomitant]
     Active Substance: DUTASTERIDE
  7. SINVACOR [Concomitant]
     Active Substance: SIMVASTATIN
  8. TAMSULOSIN [Concomitant]
     Active Substance: TAMSULOSIN

REACTIONS (4)
  - Anaemia [Unknown]
  - Asthenia [Unknown]
  - Hypotension [Unknown]
  - Gastrointestinal haemorrhage [Unknown]

NARRATIVE: CASE EVENT DATE: 20160525
